FAERS Safety Report 8914813 (Version 1)
Quarter: 2012Q4

REPORT INFORMATION
  Report Type: 
  Country: US (occurrence: US)
  Receive Date: 20121119
  Receipt Date: 20121119
  Transmission Date: 20130627
  Serious: No
  Sender: FDA-Public Use
  Company Number: US-009507513-1211USA006015

PATIENT
  Age: 20 Year
  Sex: Female
  Weight: 59 kg

DRUGS (2)
  1. NUVARING [Suspect]
     Indication: CONTRACEPTION
     Dosage: 1 ring for 3 week use
     Route: 067
     Dates: start: 201203
  2. VITAMINS (UNSPECIFIED) [Concomitant]
     Dosage: 1 tablet a day
     Route: 048

REACTIONS (3)
  - Abdominal pain lower [Unknown]
  - Vulvovaginal discomfort [Unknown]
  - Vulvovaginal pain [Unknown]
